FAERS Safety Report 9714834 (Version 1)
Quarter: 2013Q4

REPORT INFORMATION
  Report Type: Spontaneous
  Country: BR (occurrence: BR)
  Receive Date: 20131126
  Receipt Date: 20131126
  Transmission Date: 20140711
  Serious: Yes (Other)
  Sender: FDA-Public Use
  Company Number: BR-AMGEN-BRASP2013082913

PATIENT
  Age: 31 Year
  Sex: Female
  Weight: 72 kg

DRUGS (11)
  1. ENBREL [Suspect]
     Indication: RHEUMATOID ARTHRITIS
     Dosage: 50 MG, 1X/WEEK
     Route: 058
     Dates: end: 201212
  2. REUQUINOL [Concomitant]
     Indication: RHEUMATOID ARTHRITIS
     Dosage: STRENGTH 40MG AT UNSPECIFIED POSOLOGY
  3. PREDNISONE [Concomitant]
     Indication: RHEUMATOID ARTHRITIS
     Dosage: STRENGTH 5MG AT UNSPECIFIED POSOLOGY
  4. MELOXICAM [Concomitant]
     Indication: RHEUMATOID ARTHRITIS
     Dosage: STRENGTH 15MG AT UNSPECIFIED POSOLOGY
  5. METHOTREXATE [Concomitant]
     Indication: RHEUMATOID ARTHRITIS
     Dosage: 6 TABLETS OF 2.5MG (15 MG), ON TUESDAY
  6. OMEPRAZOLE [Concomitant]
     Indication: RHEUMATOID ARTHRITIS
     Dosage: STRENGTH 20MG AT UNSPECIFIED POSOLOGY
  7. FOLIC ACID [Concomitant]
     Indication: RHEUMATOID ARTHRITIS
     Dosage: STRENGTH 5MG AT UNSPECIFIED POSOLOGY
  8. ACETAMINOPHEN [Concomitant]
     Indication: PAIN
     Dosage: UNK UNK, UNK
  9. ACETAMINOPHEN [Concomitant]
     Indication: RHEUMATOID ARTHRITIS
     Dosage: UNK UNK, UNK
  10. TORAGESIC [Concomitant]
     Indication: RHEUMATOID ARTHRITIS
     Dosage: STRENGTH 10MG AT UNSPECIFIED POSOLOGY
  11. OSTEONUTRI [Concomitant]
     Indication: RHEUMATOID ARTHRITIS
     Dosage: UNK UNK, UNK

REACTIONS (2)
  - Hypokinesia [Unknown]
  - Arthralgia [Unknown]
